FAERS Safety Report 18621381 (Version 9)
Quarter: 2021Q1

REPORT INFORMATION
  Report Type: Report from Study
  Country: BR (occurrence: BR)
  Receive Date: 20201215
  Receipt Date: 20210205
  Transmission Date: 20210419
  Serious: Yes (Life-Threatening)
  Sender: FDA-Public Use
  Company Number: BR-GILEAD-2020-0509168

PATIENT
  Age: 43 Year
  Sex: Male
  Weight: 96 kg

DRUGS (115)
  1. REMDESIVIR. [Suspect]
     Active Substance: REMDESIVIR
     Indication: COVID-19 PNEUMONIA
     Dosage: 100ML, DATE OF MOST RECENT DOSE OF REMDESIVIR PRIOR TO EVENT ONSET: 02/DEC/2020 AT 13:36
     Route: 042
     Dates: start: 20201123
  2. PANTOPRAZOLE [Concomitant]
     Active Substance: PANTOPRAZOLE
     Dates: start: 20201122
  3. OXYGEN. [Concomitant]
     Active Substance: OXYGEN
     Dosage: 15 L/MIN
     Route: 055
     Dates: start: 20201126
  4. OXYGEN. [Concomitant]
     Active Substance: OXYGEN
     Dosage: 50 %
     Route: 007
     Dates: start: 20201204
  5. OXYGEN. [Concomitant]
     Active Substance: OXYGEN
     Dosage: 50 UNK
     Route: 007
     Dates: start: 20201212
  6. OXYGEN. [Concomitant]
     Active Substance: OXYGEN
     Dosage: 40 UNK
     Route: 007
     Dates: start: 20201128
  7. OXYGEN. [Concomitant]
     Active Substance: OXYGEN
     Dosage: 70 %
     Route: 007
     Dates: start: 20201214
  8. OXYGEN. [Concomitant]
     Active Substance: OXYGEN
     Dosage: 70 %
     Route: 007
     Dates: start: 20201203
  9. OXYGEN. [Concomitant]
     Active Substance: OXYGEN
     Dosage: 60 %
     Route: 007
     Dates: start: 20201206
  10. OXYGEN. [Concomitant]
     Active Substance: OXYGEN
     Dosage: TRANSTRACHEAL
     Route: 007
     Dates: start: 20201217
  11. OXYGEN. [Concomitant]
     Active Substance: OXYGEN
     Dosage: 15 L/MIN
     Route: 055
     Dates: start: 20201124
  12. OXYGEN. [Concomitant]
     Active Substance: OXYGEN
     Dosage: 50 %
     Route: 007
     Dates: start: 20201204
  13. OXYGEN. [Concomitant]
     Active Substance: OXYGEN
     Dosage: 100 %
     Dates: start: 20201222
  14. OXYGEN. [Concomitant]
     Active Substance: OXYGEN
     Dosage: 50 %
     Dates: start: 20201225
  15. OXYGEN. [Concomitant]
     Active Substance: OXYGEN
     Dosage: 35 %
     Dates: start: 20201226
  16. OXYGEN. [Concomitant]
     Active Substance: OXYGEN
     Dosage: TRANSTRACHEAL
     Dates: start: 20210102
  17. OXYGEN. [Concomitant]
     Active Substance: OXYGEN
     Dosage: TRANSTRACHEAL
     Dates: start: 20201230
  18. OXYGEN. [Concomitant]
     Active Substance: OXYGEN
     Dosage: 05
     Dates: start: 20210104
  19. OXYGEN. [Concomitant]
     Active Substance: OXYGEN
     Dates: start: 20210104
  20. OXYGEN. [Concomitant]
     Active Substance: OXYGEN
     Dosage: 02
     Dates: start: 20210111
  21. VANCOMYCIN [Concomitant]
     Active Substance: VANCOMYCIN
     Indication: SEPTIC SHOCK
     Dosage: 1000 MG
     Dates: start: 20201216
  22. TOCILIZUMAB. [Suspect]
     Active Substance: TOCILIZUMAB
     Indication: COVID-19 PNEUMONIA
     Dosage: DATE OF MOST RECENT DOSE OF BLINDED TOCILIZUMAB PRIOR TO EVENT ONSET: 24/NOV/2020 AT 09:45
     Route: 042
     Dates: start: 20201123
  23. OXYGEN. [Concomitant]
     Active Substance: OXYGEN
     Dosage: 80 UNK
     Route: 007
     Dates: start: 20201201
  24. OXYGEN. [Concomitant]
     Active Substance: OXYGEN
     Dosage: TRANSTRACHEAL
     Route: 007
     Dates: start: 20201217
  25. OXYGEN. [Concomitant]
     Active Substance: OXYGEN
     Dosage: 50 %
     Route: 007
     Dates: start: 20201210
  26. OXYGEN. [Concomitant]
     Active Substance: OXYGEN
     Dosage: 50 %
     Route: 007
     Dates: start: 20201209
  27. OXYGEN. [Concomitant]
     Active Substance: OXYGEN
     Dosage: 60 %
     Route: 007
     Dates: start: 20201211
  28. OXYGEN. [Concomitant]
     Active Substance: OXYGEN
     Dosage: 40 UNK
     Route: 007
     Dates: start: 20201204
  29. OXYGEN. [Concomitant]
     Active Substance: OXYGEN
     Dosage: TRANSTRACHEAL
     Dates: start: 20201220
  30. OXYGEN. [Concomitant]
     Active Substance: OXYGEN
     Dosage: TRANSTRACHEAL
     Dates: start: 20201219
  31. OXYGEN. [Concomitant]
     Active Substance: OXYGEN
     Dosage: 80 %
     Dates: start: 20201223
  32. OXYGEN. [Concomitant]
     Active Substance: OXYGEN
     Dates: start: 20210105
  33. OXYGEN. [Concomitant]
     Active Substance: OXYGEN
     Dates: start: 20210105
  34. OXYGEN. [Concomitant]
     Active Substance: OXYGEN
     Dosage: 02
     Dates: start: 20210110
  35. HEPARIN [Concomitant]
     Active Substance: HEPARIN SODIUM
     Dosage: 5000 IU, QD
     Dates: start: 20201217, end: 20210105
  36. AZITHROMYCIN ANHYDROUS. [Concomitant]
     Active Substance: AZITHROMYCIN ANHYDROUS
     Indication: COVID-19
     Dates: start: 20201122
  37. OXYGEN. [Concomitant]
     Active Substance: OXYGEN
     Dosage: 40 %
     Route: 007
     Dates: start: 20201212
  38. OXYGEN. [Concomitant]
     Active Substance: OXYGEN
     Dosage: 15 L/MIN
     Route: 055
     Dates: start: 20201126
  39. OXYGEN. [Concomitant]
     Active Substance: OXYGEN
     Dosage: 35 %
     Dates: start: 20201229
  40. OXYGEN. [Concomitant]
     Active Substance: OXYGEN
     Dosage: TRANSTRACHEAL
     Dates: start: 20210102
  41. OXYGEN. [Concomitant]
     Active Substance: OXYGEN
     Dates: start: 20210106
  42. OXYGEN. [Concomitant]
     Active Substance: OXYGEN
     Dosage: 60 %
     Dates: start: 20201215
  43. NORADRENALINE [NOREPINEPHRINE] [Concomitant]
     Active Substance: NOREPINEPHRINE
  44. OXYGEN. [Concomitant]
     Active Substance: OXYGEN
     Dosage: 100 %
     Route: 007
     Dates: start: 20201214
  45. OXYGEN. [Concomitant]
     Active Substance: OXYGEN
     Dosage: 65
     Dates: start: 20201125
  46. OXYGEN. [Concomitant]
     Active Substance: OXYGEN
     Dosage: 15 L/MIN
     Route: 055
     Dates: start: 20201224
  47. OXYGEN. [Concomitant]
     Active Substance: OXYGEN
     Dosage: 45 %
     Route: 007
     Dates: start: 20201202
  48. OXYGEN. [Concomitant]
     Active Substance: OXYGEN
     Dosage: TRANSTRACHEAL
     Route: 007
     Dates: start: 20201218
  49. OXYGEN. [Concomitant]
     Active Substance: OXYGEN
     Dosage: TRANSTRACHEAL
     Dates: start: 20201220
  50. OXYGEN. [Concomitant]
     Active Substance: OXYGEN
     Dosage: 35 %
     Dates: start: 20201226
  51. OXYGEN. [Concomitant]
     Active Substance: OXYGEN
     Dosage: 35 %
     Dates: start: 20201228
  52. OXYGEN. [Concomitant]
     Active Substance: OXYGEN
     Dosage: TRANSTRACHEAL
     Dates: start: 20201231
  53. OXYGEN. [Concomitant]
     Active Substance: OXYGEN
     Dosage: 02?JAN?2021
     Dates: start: 20210103
  54. OXYGEN. [Concomitant]
     Active Substance: OXYGEN
     Dosage: 03
     Dates: start: 20210108
  55. OXYGEN. [Concomitant]
     Active Substance: OXYGEN
     Dosage: 03 L/MIN
     Dates: start: 20210109
  56. OXYGEN. [Concomitant]
     Active Substance: OXYGEN
     Dosage: 04
     Dates: start: 20210107
  57. METOCLOPRAMIDE. [Concomitant]
     Active Substance: METOCLOPRAMIDE
     Dates: start: 20201122
  58. OXYGEN. [Concomitant]
     Active Substance: OXYGEN
     Dosage: 45 %
     Route: 007
     Dates: start: 20201130
  59. OXYGEN. [Concomitant]
     Active Substance: OXYGEN
     Dosage: 50 %
     Route: 007
     Dates: start: 20201207
  60. OXYGEN. [Concomitant]
     Active Substance: OXYGEN
     Dosage: 50 %
     Route: 007
     Dates: start: 20201208
  61. OXYGEN. [Concomitant]
     Active Substance: OXYGEN
     Dosage: TRANSTRACHEAL
     Route: 007
     Dates: start: 20201216
  62. OXYGEN. [Concomitant]
     Active Substance: OXYGEN
     Dosage: 50 %
     Route: 007
     Dates: start: 20201210
  63. OXYGEN. [Concomitant]
     Active Substance: OXYGEN
     Dosage: 50 %
     Route: 007
     Dates: start: 20201209
  64. OXYGEN. [Concomitant]
     Active Substance: OXYGEN
     Dosage: 45 %
     Route: 007
     Dates: start: 20201201
  65. OXYGEN. [Concomitant]
     Active Substance: OXYGEN
     Dosage: 60
     Dates: start: 20201125
  66. OXYGEN. [Concomitant]
     Active Substance: OXYGEN
     Dosage: 40 %
     Route: 007
     Dates: start: 20201129
  67. OXYGEN. [Concomitant]
     Active Substance: OXYGEN
     Dosage: 60
     Dates: start: 20201125
  68. OXYGEN. [Concomitant]
     Active Substance: OXYGEN
     Dosage: 35 %
     Dates: start: 20201225
  69. OXYGEN. [Concomitant]
     Active Substance: OXYGEN
     Dosage: 40 %
     Dates: start: 20210101
  70. OXYGEN. [Concomitant]
     Active Substance: OXYGEN
     Dosage: 03
     Dates: start: 20210107
  71. OXYGEN. [Concomitant]
     Active Substance: OXYGEN
     Dosage: 05
     Dates: start: 20210109
  72. REMDESIVIR. [Suspect]
     Active Substance: REMDESIVIR
     Dosage: END DATE OF MOST RECENT DOSE OF REMDESIVIR PRIOR TO EVENT ONSET: 02/DEC/2020 AT 14:36
     Route: 042
     Dates: start: 20201123
  73. NORADRENALINE (NORPINEPHRINE) [Concomitant]
     Active Substance: NOREPINEPHRINE
     Indication: HYPOTENSION
     Dosage: 20 ML
     Dates: start: 20201127
  74. OXYGEN. [Concomitant]
     Active Substance: OXYGEN
     Dosage: 60
     Route: 007
     Dates: start: 20201123
  75. OXYGEN. [Concomitant]
     Active Substance: OXYGEN
     Dosage: 40
     Route: 007
     Dates: start: 20201129
  76. OXYGEN. [Concomitant]
     Active Substance: OXYGEN
     Dosage: 50 UNK
     Route: 007
     Dates: start: 20201226
  77. OXYGEN. [Concomitant]
     Active Substance: OXYGEN
     Dosage: 55 %
     Route: 007
     Dates: start: 20201202
  78. OXYGEN. [Concomitant]
     Active Substance: OXYGEN
     Dosage: 40 %
     Route: 007
     Dates: start: 20201127
  79. OXYGEN. [Concomitant]
     Active Substance: OXYGEN
     Dosage: 15 L/MIN
     Route: 055
     Dates: start: 20201123
  80. OXYGEN. [Concomitant]
     Active Substance: OXYGEN
     Dosage: 60 %
     Route: 007
     Dates: start: 20201130
  81. OXYGEN. [Concomitant]
     Active Substance: OXYGEN
     Dosage: TRANSTRACHEAL
     Dates: start: 20201219
  82. OXYGEN. [Concomitant]
     Active Substance: OXYGEN
     Dosage: 60 %
     Dates: start: 20201222
  83. OXYGEN. [Concomitant]
     Active Substance: OXYGEN
     Dosage: 60 %
     Dates: start: 20201215
  84. OXYGEN. [Concomitant]
     Active Substance: OXYGEN
     Dosage: 01
     Dates: start: 20210111
  85. ENOXAPARIN [Concomitant]
     Active Substance: ENOXAPARIN
     Dates: start: 20201122
  86. DIPYRONE [Concomitant]
     Active Substance: DIPYRONE
     Indication: COVID-19
     Dates: start: 20201122
  87. DEXMEDETOMIDINE. [Concomitant]
     Active Substance: DEXMEDETOMIDINE
     Indication: ANXIETY
     Dates: start: 20201122
  88. DEXAMETHASONE. [Concomitant]
     Active Substance: DEXAMETHASONE
     Indication: COVID-19
     Dates: start: 20201122
  89. OXYGEN. [Concomitant]
     Active Substance: OXYGEN
     Dosage: 15 L/MIN
     Route: 055
     Dates: start: 20201124
  90. OXYGEN. [Concomitant]
     Active Substance: OXYGEN
     Dosage: 15 L/MIN
     Route: 055
     Dates: start: 20201123
  91. OXYGEN. [Concomitant]
     Active Substance: OXYGEN
     Dosage: 60 %
     Route: 007
     Dates: start: 20201127
  92. OXYGEN. [Concomitant]
     Active Substance: OXYGEN
     Dosage: 55 %
     Route: 007
     Dates: start: 20201205
  93. OXYGEN. [Concomitant]
     Active Substance: OXYGEN
     Dosage: 40 %
     Route: 007
     Dates: start: 20201211
  94. OXYGEN. [Concomitant]
     Active Substance: OXYGEN
     Dosage: 15
     Dates: start: 20201123
  95. OXYGEN. [Concomitant]
     Active Substance: OXYGEN
     Dosage: 55 UNK
     Route: 007
     Dates: start: 20201203
  96. OXYGEN. [Concomitant]
     Active Substance: OXYGEN
     Dosage: 50 %
     Route: 007
     Dates: start: 20201206
  97. OXYGEN. [Concomitant]
     Active Substance: OXYGEN
     Dosage: TRANSTRACHEAL
     Dates: start: 20201221
  98. OXYGEN. [Concomitant]
     Active Substance: OXYGEN
     Dosage: 90 %
     Dates: start: 20201223
  99. OXYGEN. [Concomitant]
     Active Substance: OXYGEN
     Dosage: TRANSTRACHEAL
     Dates: start: 20201231
  100. OXYGEN. [Concomitant]
     Active Substance: OXYGEN
     Dosage: TRANSTRACHEAL
     Dates: start: 20201231
  101. OXYGEN. [Concomitant]
     Active Substance: OXYGEN
     Dosage: 04
     Dates: start: 20210108
  102. OXYGEN. [Concomitant]
     Active Substance: OXYGEN
     Dosage: 05
     Dates: start: 20210110
  103. OXYGEN. [Concomitant]
     Active Substance: OXYGEN
     Dosage: 03
     Dates: start: 20210106
  104. CEFTRIAXONE. [Concomitant]
     Active Substance: CEFTRIAXONE
     Indication: COVID-19
     Dates: start: 20201122
  105. OXYGEN. [Concomitant]
     Active Substance: OXYGEN
     Dosage: 55 %
     Route: 007
     Dates: start: 20201216
  106. OXYGEN. [Concomitant]
     Active Substance: OXYGEN
     Dosage: 40 %
     Route: 007
     Dates: start: 20201213
  107. OXYGEN. [Concomitant]
     Active Substance: OXYGEN
     Dosage: 70 %
     Route: 007
     Dates: start: 20201208
  108. OXYGEN. [Concomitant]
     Active Substance: OXYGEN
     Dosage: 50 %
     Route: 007
     Dates: start: 20201207
  109. OXYGEN. [Concomitant]
     Active Substance: OXYGEN
     Dosage: 15 L/MIN
     Route: 055
     Dates: start: 20201226
  110. OXYGEN. [Concomitant]
     Active Substance: OXYGEN
     Dosage: 50 %
     Route: 007
     Dates: start: 20201205
  111. OXYGEN. [Concomitant]
     Active Substance: OXYGEN
     Dosage: TRANSTRACHEAL
     Route: 007
     Dates: start: 20201221
  112. OXYGEN. [Concomitant]
     Active Substance: OXYGEN
     Dosage: 40 %
     Route: 007
     Dates: start: 20201129
  113. OXYGEN. [Concomitant]
     Active Substance: OXYGEN
     Dosage: 80 %
     Dates: start: 20201224
  114. OXYGEN. [Concomitant]
     Active Substance: OXYGEN
     Dosage: 50 %
     Dates: start: 20201224
  115. OXYGEN. [Concomitant]
     Active Substance: OXYGEN
     Dosage: 35 %
     Dates: start: 20201227

REACTIONS (1)
  - Urinary tract infection [Recovered/Resolved]

NARRATIVE: CASE EVENT DATE: 20201209
